FAERS Safety Report 14620703 (Version 2)
Quarter: 2018Q2

REPORT INFORMATION
  Report Type: Spontaneous
  Country: US (occurrence: US)
  Receive Date: 20180309
  Receipt Date: 20180413
  Transmission Date: 20180711
  Serious: No
  Sender: FDA-Public Use
  Company Number: US-INCYTE CORPORATION-2018IN002025

PATIENT

DRUGS (5)
  1. GABAPENTIN. [Concomitant]
     Active Substance: GABAPENTIN
     Indication: PRODUCT USED FOR UNKNOWN INDICATION
     Route: 065
  2. JAKAFI [Suspect]
     Active Substance: RUXOLITINIB
     Dosage: 15 MG, BID
     Route: 048
     Dates: start: 20150625
  3. JAKAFI [Suspect]
     Active Substance: RUXOLITINIB
     Indication: POLYCYTHAEMIA VERA
     Dosage: 10 MG, BID
     Route: 048
     Dates: start: 201502
  4. RITUXAN [Concomitant]
     Active Substance: RITUXIMAB
     Indication: B-CELL LYMPHOMA
     Dosage: 6 CYCLES
     Route: 065
     Dates: end: 201410
  5. RITUXAN [Concomitant]
     Active Substance: RITUXIMAB
     Dosage: MAINTENANCE, Q8 WEEKS
     Route: 065
     Dates: start: 201412

REACTIONS (12)
  - Drug dose omission [Unknown]
  - Headache [Unknown]
  - Influenza [Unknown]
  - Splenomegaly [Unknown]
  - Diarrhoea [Unknown]
  - Hepatic enzyme increased [Recovered/Resolved]
  - Blood lactate dehydrogenase increased [Recovering/Resolving]
  - Pyrexia [Unknown]
  - Irritable bowel syndrome [Unknown]
  - Vomiting [Unknown]
  - Myalgia [Unknown]
  - Weight increased [Unknown]

NARRATIVE: CASE EVENT DATE: 20180225
